FAERS Safety Report 10635835 (Version 1)
Quarter: 2014Q4

REPORT INFORMATION
  Report Type: Spontaneous
  Country: FR (occurrence: FR)
  Receive Date: 20141205
  Receipt Date: 20141205
  Transmission Date: 20150529
  Serious: Yes (Death)
  Sender: FDA-Public Use
  Company Number: FR-PFIZER INC-2014332361

PATIENT
  Age: 71 Year
  Sex: Male

DRUGS (6)
  1. PRIMPERAN [Suspect]
     Active Substance: METOCLOPRAMIDE HYDROCHLORIDE
     Dosage: 10 MG, UNK
     Route: 048
  2. DEBRIDAT [Suspect]
     Active Substance: TRIMEBUTINE MALEATE
     Dosage: 100 MG, UNK
     Route: 048
  3. AZANTAC [Suspect]
     Active Substance: RANITIDINE HYDROCHLORIDE
     Dosage: 150 MG, UNK
     Route: 048
  4. SOLU-MEDROL [Suspect]
     Active Substance: METHYLPREDNISOLONE SODIUM SUCCINATE
     Dosage: 40MG/2ML; UNK
     Route: 051
  5. LOPRIL [Suspect]
     Active Substance: LISINOPRIL
     Dosage: 25 MG, UNK
     Route: 048
  6. PROFENID [Suspect]
     Active Substance: KETOPROFEN
     Dosage: 400 MG, 1X/DAY
     Route: 048
     Dates: end: 19920709

REACTIONS (4)
  - Toxic epidermal necrolysis [Fatal]
  - Lactic acidosis [Fatal]
  - Sepsis [Fatal]
  - Acute kidney injury [Fatal]

NARRATIVE: CASE EVENT DATE: 19920709
